FAERS Safety Report 4987897-1 (Version None)
Quarter: 2006Q2

REPORT INFORMATION
  Report Type: 
  Country: None (occurrence: None)
  Receive Date: 20060426
  Receipt Date: 20060410
  Transmission Date: 20061013
  Serious: Yes (Other)
  Sender: FDA-Public Use
  Company Number: PHBS2006GB05453

PATIENT
  Sex: 0

DRUGS (1)
  1. VISUDYNE [Suspect]
     Indication: CHOROIDAL NEOVASCULARISATION

REACTIONS (3)
  - RETINAL HAEMORRHAGE [None]
  - RETINAL SCAR [None]
  - VISUAL ACUITY REDUCED [None]
